FAERS Safety Report 9111556 (Version 1)
Quarter: 2013Q1

REPORT INFORMATION
  Report Type: Spontaneous
  Country: US (occurrence: US)
  Receive Date: 20130219
  Receipt Date: 20130219
  Transmission Date: 20140127
  Serious: No
  Sender: FDA-Public Use
  Company Number: US-BRISTOL-MYERS SQUIBB COMPANY-16320152

PATIENT
  Sex: 0

DRUGS (2)
  1. ORENCIA [Suspect]
     Dosage: 27DEC11
     Dates: start: 201107
  2. PREDNISONE [Concomitant]

REACTIONS (4)
  - Drug ineffective [Unknown]
  - Local swelling [Unknown]
  - Musculoskeletal pain [Unknown]
  - Arthralgia [Unknown]
